FAERS Safety Report 4897726-2 (Version None)
Quarter: 2006Q1

REPORT INFORMATION
  Report Type: 
  Country: None (occurrence: None)
  Receive Date: 20060130
  Receipt Date: 20060130
  Transmission Date: 20060701
  Serious: Yes (Other)
  Sender: FDA-Public Use
  Company Number: None

PATIENT
  Age: 52 Year
  Sex: Male
  Weight: 70.3 kg

DRUGS (9)
  1. SIMVASTATIN [Suspect]
  2. ATENOLOL [Concomitant]
  3. LISINOPRIL [Concomitant]
  4. CHOLESTYRAMINE [Concomitant]
  5. CLOPIDOGREL BISULFATE [Concomitant]
  6. CYCLOBENZAPRINE HCL [Concomitant]
  7. CODEINE PHOSPHATE AND ACETAMINOPHEN [Concomitant]
  8. BUPROPION HCL [Concomitant]
  9. SILDENAFIL CITRATE [Concomitant]

REACTIONS (1)
  - MYALGIA [None]
